FAERS Safety Report 5490069-8 (Version None)
Quarter: 2007Q4

REPORT INFORMATION
  Report Type: 
  Country: None (occurrence: None)
  Receive Date: 20071018
  Receipt Date: 20071018
  Transmission Date: 20080405
  Serious: Yes (Other)
  Sender: FDA-Public Use
  Company Number: GB-ROXANE LABORATORIES, INC-2007-DE-06105GD

PATIENT
  Sex: Female

DRUGS (8)
  1. PARACETAMOL [Suspect]
     Route: 064
  2. MORPHINE [Suspect]
     Route: 064
  3. DEXAMETHASONE 0.5MG TAB [Suspect]
     Indication: MATERNAL THERAPY TO ENHANCE FOETAL LUNG MATURITY
     Route: 064
  4. CHLORPHENIRAMINE TAB [Suspect]
     Route: 064
  5. CYCLOSPORINE [Suspect]
     Route: 064
  6. GENTAMICIN [Suspect]
     Route: 064
  7. METRONIDAZOLE [Suspect]
     Route: 064
  8. COMPOUND SODIUM LACTATE [Suspect]
     Route: 064

REACTIONS (1)
  - PREMATURE BABY [None]
